FAERS Safety Report 15526825 (Version 1)
Quarter: 2018Q4

REPORT INFORMATION
  Report Type: Spontaneous
  Country: IT (occurrence: IT)
  Receive Date: 20181018
  Receipt Date: 20181018
  Transmission Date: 20190205
  Serious: Yes (Hospitalization)
  Sender: FDA-Public Use
  Company Number: IT-SA-2018SA284322

PATIENT
  Age: 52 Year
  Sex: Male

DRUGS (9)
  1. ALCOVER [Suspect]
     Active Substance: SODIUM OXYBATE
     Indication: INTENTIONAL SELF-INJURY
     Dosage: 5 DF, TOTAL
     Route: 048
  2. QUETIAPINE FUMARATE. [Suspect]
     Active Substance: QUETIAPINE FUMARATE
     Indication: INTENTIONAL SELF-INJURY
     Dosage: 5 DF, TOTAL
     Route: 048
  3. NOVORAPID [Concomitant]
     Active Substance: INSULIN ASPART
     Route: 065
  4. SERETIDE [Concomitant]
     Active Substance: FLUTICASONE PROPIONATE\SALMETEROL XINAFOATE
  5. SPIRIVA [Concomitant]
     Active Substance: TIOTROPIUM BROMIDE MONOHYDRATE
     Route: 065
  6. LORAZEPAM. [Suspect]
     Active Substance: LORAZEPAM
     Indication: INTENTIONAL SELF-INJURY
     Dosage: 10 DF, TOTAL
     Route: 048
  7. STILNOX [Suspect]
     Active Substance: ZOLPIDEM TARTRATE
     Indication: INTENTIONAL SELF-INJURY
     Dosage: 10 DF, TOTAL
     Route: 048
  8. MEDROL [METHYLPREDNISOLONE] [Concomitant]
     Route: 065
  9. LANTUS [Concomitant]
     Active Substance: INSULIN GLARGINE
     Route: 065

REACTIONS (3)
  - Intentional overdose [Unknown]
  - Sopor [Recovered/Resolved]
  - Intentional self-injury [Recovered/Resolved]

NARRATIVE: CASE EVENT DATE: 20180825
